FAERS Safety Report 21149175 (Version 1)
Quarter: 2022Q3

REPORT INFORMATION
  Report Type: Spontaneous
  Country: US (occurrence: US)
  Receive Date: 20220729
  Receipt Date: 20220729
  Transmission Date: 20221027
  Serious: Yes (Hospitalization, Other)
  Sender: FDA-Public Use
  Company Number: US-FreseniusKabi-FK202210510

PATIENT
  Age: 50 Year
  Sex: Female

DRUGS (1)
  1. DOXORUBICIN [Suspect]
     Active Substance: DOXORUBICIN
     Indication: Hepatocellular carcinoma
     Dosage: TRANSARTERIAL CHEMOEMBOLIZATION

REACTIONS (5)
  - Systemic toxicity [Unknown]
  - Neutropenia [Recovering/Resolving]
  - Pulmonary alveolar haemorrhage [Unknown]
  - Non-cardiogenic pulmonary oedema [Unknown]
  - Interstitial lung disease [Unknown]
